FAERS Safety Report 17889030 (Version 1)
Quarter: 2020Q2

REPORT INFORMATION
  Report Type: Spontaneous
  Country: US (occurrence: US)
  Receive Date: 20200612
  Receipt Date: 20200612
  Transmission Date: 20200714
  Serious: No
  Sender: FDA-Public Use
  Company Number: US-SA-2020SA151225

PATIENT

DRUGS (3)
  1. LANTUS [Suspect]
     Active Substance: INSULIN GLARGINE
     Dosage: 36 IU, QD
  2. LANTUS [Suspect]
     Active Substance: INSULIN GLARGINE
     Indication: TYPE 2 DIABETES MELLITUS
     Dosage: 18 IU, QD
     Dates: start: 20200513
  3. LANTUS [Suspect]
     Active Substance: INSULIN GLARGINE
     Dosage: 40 IU, QD

REACTIONS (3)
  - Blood glucose increased [Unknown]
  - Dizziness [Recovered/Resolved]
  - Nausea [Recovered/Resolved]
